FAERS Safety Report 9993266 (Version 1)
Quarter: 2014Q1

REPORT INFORMATION
  Report Type: Spontaneous
  Country: GB (occurrence: GB)
  Receive Date: 20140310
  Receipt Date: 20140310
  Transmission Date: 20141002
  Serious: Yes (Other)
  Sender: FDA-Public Use
  Company Number: PHFR2014GB001979

PATIENT
  Age: 41 Year
  Sex: Female

DRUGS (5)
  1. CLOZAPINE [Suspect]
     Dosage: UNK UKN, UNK
     Route: 048
  2. CLOZAPINE [Suspect]
     Dosage: 175 MG, UNK
     Dates: start: 2010
  3. DULOXETINE [Concomitant]
     Route: 048
  4. MIRTAZAPINE [Concomitant]
     Route: 048
  5. ABILIFY [Concomitant]
     Dosage: 20 MG, UNK

REACTIONS (2)
  - Parotid gland enlargement [Not Recovered/Not Resolved]
  - Pain [Unknown]
